FAERS Safety Report 7252913-3 (Version None)
Quarter: 2011Q1

REPORT INFORMATION
  Report Type: 
  Country: None (occurrence: None)
  Receive Date: 20110129
  Receipt Date: 20100329
  Transmission Date: 20110831
  Serious: No
  Sender: FDA-Public Use
  Company Number: US-ABBOTT-10P-163-0629754-00

PATIENT
  Sex: Male
  Weight: 74.91 kg

DRUGS (4)
  1. HUMIRA [Suspect]
     Indication: CROHN'S DISEASE
     Route: 058
     Dates: start: 20091101
  2. MERCAPTOPURINE [Concomitant]
     Indication: CROHN'S DISEASE
     Dates: end: 20100201
  3. ENTOCORT EC [Concomitant]
     Indication: CROHN'S DISEASE
     Dates: end: 20100201
  4. PREDNISONE [Concomitant]
     Indication: CROHN'S DISEASE
     Route: 048

REACTIONS (5)
  - SECRETION DISCHARGE [None]
  - INFECTION [None]
  - DRY SKIN [None]
  - RASH PAPULAR [None]
  - RASH MACULAR [None]
